FAERS Safety Report 7629896 (Version 10)
Quarter: 2013Q1

REPORT INFORMATION
  Report Type: Spontaneous
  Country: US (occurrence: US)
  Receive Date: 20101014
  Receipt Date: 20130308
  Transmission Date: 20140127
  Serious: Yes (Hospitalization, Congenital Anomaly, Other)
  Sender: FDA-Public Use
  Company Number: US-PFIZER INC-2010128154

PATIENT
  Sex: Female
  Weight: 3 kg

DRUGS (9)
  1. ZOLOFT [Suspect]
     Indication: ANXIETY
     Dosage: 50 MG, 1X/DAY
     Route: 064
     Dates: start: 20051011
  2. ZOLOFT [Suspect]
     Dosage: UNK
     Route: 064
     Dates: start: 2005
  3. KEFLEX [Concomitant]
     Indication: UPPER RESPIRATORY TRACT INFECTION
     Dosage: 1000 MG, 1X/DAY
     Route: 064
     Dates: start: 20060817
  4. TYLENOL [Concomitant]
     Indication: ABDOMINAL PAIN LOWER
     Dosage: UNK
     Route: 064
     Dates: start: 20060602
  5. PRENATAL VITAMINS [Concomitant]
     Dosage: 1-29 MG ONCE DAILY
     Route: 064
     Dates: start: 20061003
  6. WELLBUTRIN [Concomitant]
     Dosage: UNK
     Route: 064
  7. IBUPROFEN [Concomitant]
     Dosage: UNK
     Route: 064
  8. ORTHO EVRA [Concomitant]
     Dosage: UNK
     Route: 064
  9. MILK OF MAGNESIA [Concomitant]
     Dosage: UNK
     Route: 064

REACTIONS (11)
  - Foetal exposure during pregnancy [Unknown]
  - Cleft palate [Recovering/Resolving]
  - Skull malformation [Unknown]
  - Otitis media [Unknown]
  - Fine motor delay [Unknown]
  - Cognitive disorder [Unknown]
  - Congenital anomaly [Unknown]
  - Eustachian tube dysfunction [Recovering/Resolving]
  - Speech disorder developmental [Recovering/Resolving]
  - Upper respiratory tract infection [Unknown]
  - Hearing impaired [Unknown]
